FAERS Safety Report 16580922 (Version 1)
Quarter: 2019Q3

REPORT INFORMATION
  Report Type: Spontaneous
  Country: US (occurrence: US)
  Receive Date: 20190716
  Receipt Date: 20190716
  Transmission Date: 20191004
  Serious: No
  Sender: FDA-Public Use
  Company Number: US-BAUSCH-BL-2019-018794

PATIENT
  Sex: Female

DRUGS (5)
  1. LOTEMAX SM [Suspect]
     Active Substance: LOTEPREDNOL ETABONATE
     Indication: EYE PAIN
     Dosage: PATIENT USED THE PRODUCT 3 TIMES A DAY, MORNING, AFTERNOON AND EVENING
     Route: 047
     Dates: start: 20190625, end: 20190626
  2. LOTEMAX SM [Suspect]
     Active Substance: LOTEPREDNOL ETABONATE
     Indication: EYE PRURITUS
  3. LOTEMAX SM [Suspect]
     Active Substance: LOTEPREDNOL ETABONATE
     Indication: PRODUCT USE IN UNAPPROVED INDICATION
  4. LOTEMAX SM [Suspect]
     Active Substance: LOTEPREDNOL ETABONATE
     Indication: EYE INFLAMMATION
     Dosage: SHE STARTED USING THE PRODUCT ON 24/JUN/2019
     Route: 047
     Dates: start: 20190624, end: 20190624
  5. LOTEMAX SM [Suspect]
     Active Substance: LOTEPREDNOL ETABONATE
     Indication: EYE IRRITATION

REACTIONS (5)
  - Extra dose administered [Unknown]
  - Eye disorder [Unknown]
  - Product use in unapproved indication [Unknown]
  - Eye irritation [Not Recovered/Not Resolved]
  - Product prescribing error [Unknown]

NARRATIVE: CASE EVENT DATE: 20190624
